FAERS Safety Report 9217263 (Version 4)
Quarter: 2013Q2

REPORT INFORMATION
  Report Type: Report from Study
  Country: BR (occurrence: BR)
  Receive Date: 20130408
  Receipt Date: 20130501
  Transmission Date: 20140414
  Serious: Yes (Other)
  Sender: FDA-Public Use
  Company Number: BR-ROCHE-1206704

PATIENT
  Age: 58 Year
  Sex: Male
  Weight: 78 kg

DRUGS (14)
  1. RITUXIMAB [Suspect]
     Indication: B-CELL LYMPHOMA
     Route: 042
     Dates: start: 20121005
  2. RHUPH20/RITUXIMAB [Suspect]
     Indication: B-CELL LYMPHOMA
     Route: 058
     Dates: start: 20121026
  3. RHUPH20/RITUXIMAB [Suspect]
     Route: 058
     Dates: start: 20121114
  4. RHUPH20/RITUXIMAB [Suspect]
     Route: 058
     Dates: start: 20121228
  5. RHUPH20/RITUXIMAB [Suspect]
     Route: 058
     Dates: start: 20121207
  6. RHUPH20/RITUXIMAB [Suspect]
     Route: 058
     Dates: start: 20130118
  7. RHUPH20/RITUXIMAB [Suspect]
     Dosage: DATE OF LAST DOSE PRIOR TO SAE WAS 08/FEB/2013
     Route: 058
     Dates: start: 20130208
  8. RHUPH20/RITUXIMAB [Suspect]
     Route: 058
     Dates: start: 20130301
  9. SULFAMETHOXAZOLE/TRIMETHOPRIM [Concomitant]
     Route: 065
     Dates: start: 201103
  10. OMEPRAZOL [Concomitant]
     Indication: PROPHYLAXIS AGAINST GASTROINTESTINAL ULCER
     Route: 065
     Dates: start: 201103
  11. ENALAPRIL [Concomitant]
     Indication: HYPERTENSION
     Route: 065
     Dates: start: 201004
  12. DIOSMINA [Concomitant]
     Indication: DEPRESSION
     Route: 065
     Dates: start: 201202
  13. VARFARINE [Concomitant]
     Route: 065
     Dates: start: 201202
  14. HESPERIDINA [Concomitant]
     Indication: DEPRESSION
     Route: 065
     Dates: start: 201202

REACTIONS (1)
  - Infusion site erythema [Recovered/Resolved]
